FAERS Safety Report 7874001-5 (Version None)
Quarter: 2011Q3

REPORT INFORMATION
  Report Type: 
  Country: None (occurrence: None)
  Receive Date: 20110928
  Receipt Date: 20101022
  Transmission Date: 20111222
  Serious: Yes (Other)
  Sender: FDA-Public Use
  Company Number: US-1183809

PATIENT
  Sex: Male

DRUGS (1)
  1. TOBRADEX [Suspect]
     Indication: EYE INFECTION
     Dosage: (OPHTHALMIC)

REACTIONS (1)
  - DRUG INEFFECTIVE [None]
